FAERS Safety Report 5479285-9 (Version None)
Quarter: 2007Q4

REPORT INFORMATION
  Report Type: 
  Country: None (occurrence: None)
  Receive Date: 20071008
  Receipt Date: 20070928
  Transmission Date: 20080405
  Serious: Yes (Hospitalization)
  Sender: FDA-Public Use
  Company Number: GB-BRISTOL-MYERS SQUIBB COMPANY-12799433

PATIENT
  Age: 47 Year
  Sex: Female

DRUGS (4)
  1. CETUXIMAB [Suspect]
     Indication: COLORECTAL CANCER METASTATIC
     Dosage: MOST RECENT INFUSION ON 08-DEC-04/THEN DELAYED.  PT HAD REC'D 3 INFUSIONS TO DATE.
     Route: 041
     Dates: start: 20041124
  2. IRINOTECAN HCL [Suspect]
     Indication: COLORECTAL CANCER METASTATIC
     Dosage: MOST RECENT INFUSION ON 08-DEC-04.  PT HAD REC'D 2 INFUSIONS TO DATE.
     Route: 042
     Dates: start: 20041124
  3. MORPHINE SULFATE [Concomitant]
  4. ORAMORPH SR [Concomitant]

REACTIONS (6)
  - COAGULOPATHY [None]
  - DIARRHOEA [None]
  - MELAENA [None]
  - NAUSEA [None]
  - SINUS TACHYCARDIA [None]
  - VOMITING [None]
